FAERS Safety Report 4694939-X (Version None)
Quarter: 2005Q2

REPORT INFORMATION
  Report Type: 
  Country: None (occurrence: None)
  Receive Date: 20050617
  Receipt Date: 20050601
  Transmission Date: 20051028
  Serious: Yes (Hospitalization, Other)
  Sender: FDA-Public Use
  Company Number: DSA_26557_2005

PATIENT
  Age: 61 Year
  Sex: Male
  Weight: 77 kg

DRUGS (11)
  1. TEMESTA [Suspect]
     Dosage: 5 MG Q DAY
     Dates: start: 20041113, end: 20041124
  2. TEMESTA [Suspect]
     Dosage: 7.5 MG Q DAY
     Dates: start: 20041109, end: 20041112
  3. TEMESTA [Suspect]
     Dosage: 3.75 MG Q DAY
     Dates: start: 20041120, end: 20041126
  4. TEMESTA [Suspect]
     Dosage: 2.5 MG Q DAY
     Dates: start: 20041127, end: 20041127
  5. SEROQUEL [Suspect]
     Dosage: 100 MG Q DAY
     Dates: start: 20041111, end: 20041114
  6. SEROQUEL [Suspect]
     Dosage: 50 MG DAILY
     Dates: start: 20041120
  7. DEPAKINE CRONO [Suspect]
     Dosage: 1000 MG DAILY
     Dates: start: 20041109
  8. DOMINAL FORTE [Suspect]
     Dosage: 160 MG DAILY
     Dates: start: 20041109, end: 20041114
  9. DOMINAL FORTE [Suspect]
     Dosage: 120 MG DAILY
     Dates: start: 20041120, end: 20041127
  10. DOMINAL FORTE [Suspect]
     Dosage: 80 MG DAILY
     Dates: start: 20041127
  11. EXIBA [Concomitant]

REACTIONS (4)
  - DYSPNOEA [None]
  - HAEMORRHAGE [None]
  - HEAD INJURY [None]
  - LOSS OF CONSCIOUSNESS [None]
